FAERS Safety Report 5093308-0 (Version None)
Quarter: 2006Q3

REPORT INFORMATION
  Report Type: 
  Country: None (occurrence: None)
  Receive Date: 20060828
  Receipt Date: 20060813
  Transmission Date: 20061208
  Serious: Yes (Other)
  Sender: FDA-Public Use
  Company Number: 2006001596

PATIENT
  Age: 55 Year
  Sex: Female

DRUGS (1)
  1. TARCEVA [Suspect]
     Indication: NON-SMALL CELL LUNG CANCER
     Dosage: 150 MG (QD), ORAL
     Route: 048
     Dates: start: 20060714, end: 20060725

REACTIONS (5)
  - COAGULOPATHY [None]
  - DISEASE PROGRESSION [None]
  - RASH [None]
  - RETINAL HAEMORRHAGE [None]
  - VISION BLURRED [None]
